FAERS Safety Report 7035466-4 (Version None)
Quarter: 2010Q4

REPORT INFORMATION
  Report Type: 
  Country: None (occurrence: None)
  Receive Date: 20101008
  Receipt Date: 20101001
  Transmission Date: 20110411
  Serious: Yes (Hospitalization)
  Sender: FDA-Public Use
  Company Number: JP-PFIZER INC-2010108467

PATIENT
  Age: 77 Year
  Sex: Female

DRUGS (4)
  1. CELECOX [Suspect]
     Indication: OSTEOARTHRITIS
     Dosage: 200 MG, 2X/DAY
     Route: 048
     Dates: start: 20100722, end: 20100806
  2. AMLODIPINE BESYLATE [Concomitant]
     Indication: HYPERTENSION
     Dosage: UNK
  3. BLOPRESS [Concomitant]
     Indication: HYPERTENSION
     Dosage: UNK
  4. GASTER [Concomitant]
     Indication: OSTEOARTHRITIS
     Dosage: UNK
     Dates: start: 20100722, end: 20100806

REACTIONS (1)
  - RASH [None]
